FAERS Safety Report 21891848 (Version 1)
Quarter: 2023Q1

REPORT INFORMATION
  Report Type: Spontaneous
  Country: US (occurrence: None)
  Receive Date: 20230120
  Receipt Date: 20230120
  Transmission Date: 20230418
  Serious: Yes (Life-Threatening, Hospitalization)
  Sender: FDA-Public Use
  Company Number: None

PATIENT
  Age: 56 Year
  Sex: Male
  Weight: 122 kg

DRUGS (14)
  1. FUROSEMIDE [Suspect]
     Active Substance: FUROSEMIDE
     Indication: Oedema due to renal disease
     Dosage: OTHER QUANTITY : 1 TABLET(S);?FREQUENCY : DAILY;?
     Route: 048
     Dates: start: 20220601, end: 20230105
  2. DEVICE [Concomitant]
     Active Substance: DEVICE
  3. VITAMIN D2 [Concomitant]
     Active Substance: ERGOCALCIFEROL
  4. CARVEDILOL [Concomitant]
     Active Substance: CARVEDILOL
  5. ATORVASTATIN [Concomitant]
     Active Substance: ATORVASTATIN
  6. AMLODIPINE [Concomitant]
     Active Substance: AMLODIPINE BESYLATE
  7. HYDROCHLOROTHIAZIDE [Concomitant]
     Active Substance: HYDROCHLOROTHIAZIDE
  8. MAGNESIUM [Concomitant]
     Active Substance: MAGNESIUM
  9. CLOPIDOGREL [Concomitant]
     Active Substance: CLOPIDOGREL BISULFATE
  10. ROPINEROL [Concomitant]
  11. ENTERIC COATED ASPIRIN 81 MG [Concomitant]
  12. OVER 50 MALE VITIAMIN [Concomitant]
  13. FISH OIL [Concomitant]
     Active Substance: FISH OIL
  14. VITAMIN D3 [Concomitant]
     Active Substance: CHOLECALCIFEROL

REACTIONS (9)
  - Arrhythmia [None]
  - Ventricular extrasystoles [None]
  - Dizziness [None]
  - Nausea [None]
  - Tinnitus [None]
  - Oedema [None]
  - Constipation [None]
  - Vertigo [None]
  - Paranoia [None]

NARRATIVE: CASE EVENT DATE: 20221229
